FAERS Safety Report 7680790-5 (Version None)
Quarter: 2011Q3

REPORT INFORMATION
  Report Type: 
  Country: None (occurrence: None)
  Receive Date: 20110812
  Receipt Date: 20110808
  Transmission Date: 20111222
  Serious: Yes (Hospitalization)
  Sender: FDA-Public Use
  Company Number: US-MERCK-1108USA00960

PATIENT
  Age: 31 Year
  Sex: Male

DRUGS (1)
  1. ISENTRESS [Suspect]
     Route: 048

REACTIONS (2)
  - BRAIN NEOPLASM [None]
  - WRONG TECHNIQUE IN DRUG USAGE PROCESS [None]
